FAERS Safety Report 8760960 (Version 1)
Quarter: 2012Q4

REPORT INFORMATION
  Report Type: 
  Country: US (occurrence: US)
  Receive Date: 20120830
  Receipt Date: 20120830
  Transmission Date: 20130627
  Serious: No
  Sender: FDA-Public Use
  Company Number: US-TEVA-355844USA

PATIENT
  Age: 69 Year
  Sex: Female
  Weight: 69.46 kg

DRUGS (4)
  1. PROAIR HFA [Suspect]
  2. FLUOXETINE HYDROCHLORIDE [Concomitant]
     Indication: DEPRESSION
     Dosage: 40 Milligram Daily;
  3. ALPRAZOLAM [Concomitant]
     Indication: SLEEP APNOEA SYNDROME
     Dosage: .25 Milligram Daily;
  4. VALSARTAN [Concomitant]
     Indication: HYPERTENSION

REACTIONS (1)
  - Tremor [Recovered/Resolved]
